FAERS Safety Report 9807284 (Version 2)
Quarter: 2014Q1

REPORT INFORMATION
  Report Type: Spontaneous
  Country: US (occurrence: US)
  Receive Date: 20140110
  Receipt Date: 20140128
  Transmission Date: 20141002
  Serious: Yes (Death)
  Sender: FDA-Public Use
  Company Number: US-MERCK-1401USA003816

PATIENT
  Age: 31 Year
  Sex: Male
  Weight: 79 kg

DRUGS (5)
  1. SAPHRIS [Suspect]
     Indication: BIPOLAR DISORDER
     Dosage: UNK
     Route: 060
  2. ALPRAZOLAM [Suspect]
  3. CLONAZEPAM [Suspect]
  4. FENTANYL [Suspect]
  5. AMPHETAMINE [Suspect]

REACTIONS (1)
  - Toxicity to various agents [Fatal]
